FAERS Safety Report 16089895 (Version 1)
Quarter: 2019Q2

REPORT INFORMATION
  Report Type: Spontaneous
  Country: US (occurrence: US)
  Receive Date: 20190319
  Receipt Date: 20190319
  Transmission Date: 20190711
  Serious: Yes (Hospitalization)
  Sender: FDA-Public Use
  Company Number: None

PATIENT
  Age: 85 Year
  Sex: Female

DRUGS (17)
  1. IBRANCE [Suspect]
     Active Substance: PALBOCICLIB
     Indication: BREAST CANCER FEMALE
     Dosage: ?          OTHER FREQUENCY:DAILY FOR 21 DAYS,;?
     Route: 048
  2. LIPITOR 10MG TABLETS [Concomitant]
     Dates: start: 20180201
  3. CYMBALTA [Concomitant]
     Active Substance: DULOXETINE HYDROCHLORIDE
     Dates: start: 20180201
  4. LETROZOLE 2.5MG TABLETS [Concomitant]
     Active Substance: LETROZOLE
     Dates: start: 20180201
  5. MONTELUKAST 10MG TABLETS [Concomitant]
     Active Substance: MONTELUKAST\MONTELUKAST SODIUM
     Dates: start: 20181030
  6. LEVOCETIRIZINE 10MG TABLETS [Concomitant]
     Dates: start: 20181001
  7. DULOXETINE 60MG CAPSULES [Concomitant]
     Dates: start: 20181014
  8. SPIRIVA SPR 2.5 MCG [Concomitant]
     Dates: start: 20190309
  9. ATENOLOL 50MG TABLETS [Concomitant]
     Dates: start: 20181120
  10. TRIAMTRENE/HYDROCHORLOTHIAZIDE 37.5MG/25MG [Concomitant]
     Dates: start: 20181120
  11. OMEPRAZOLE 40MG CAPSULES [Concomitant]
     Active Substance: OMEPRAZOLE
     Dates: start: 20180718
  12. PREDNISONE 10MG TABLETS [Concomitant]
     Active Substance: PREDNISONE
     Dates: start: 20190309
  13. BUDESONIDE SUSPENSION 0.5MG/2 ML [Concomitant]
     Dates: start: 20180507
  14. VITAMIN D3 2000UNITS TABLETS [Concomitant]
     Dates: start: 20180201
  15. LEVOTHYROXINE 50MCG TABLETS [Concomitant]
     Dates: start: 20180812
  16. ALBUTEROL NEB SOL 0.083% [Concomitant]
     Dates: start: 20190309
  17. PERFROMOMIST NEB 20MCG [Concomitant]
     Dates: start: 20180508

REACTIONS (2)
  - Chronic obstructive pulmonary disease [None]
  - Product dose omission [None]

NARRATIVE: CASE EVENT DATE: 20190210
